FAERS Safety Report 17189999 (Version 1)
Quarter: 2019Q4

REPORT INFORMATION
  Report Type: Spontaneous
  Country: SE (occurrence: SE)
  Receive Date: 20191223
  Receipt Date: 20191223
  Transmission Date: 20200122
  Serious: Yes (Hospitalization)
  Sender: FDA-Public Use
  Company Number: SE-009507513-1912SWE008033

PATIENT
  Age: 51 Year
  Sex: Male

DRUGS (4)
  1. PROPAVAN [Suspect]
     Active Substance: PROPIOMAZINE
     Dosage: 500 MILLIGRAM, UNK
     Route: 048
     Dates: start: 20190515, end: 20190515
  2. ATARAX [Suspect]
     Active Substance: HYDROXYZINE HYDROCHLORIDE
     Dosage: 1250 MILLIGRAM, UNK
     Dates: start: 20190515, end: 20190515
  3. CITALOPRAM [Suspect]
     Active Substance: CITALOPRAM HYDROBROMIDE
     Dosage: 300 MILLIGRAM, UNK
     Dates: start: 20190515, end: 20190515
  4. DESLORATADINE. [Suspect]
     Active Substance: DESLORATADINE
     Dosage: 100 MILLIGRAM, UNK
     Dates: start: 20190515, end: 20190515

REACTIONS (3)
  - Intentional overdose [Unknown]
  - Intentional self-injury [Unknown]
  - Depressed level of consciousness [Unknown]

NARRATIVE: CASE EVENT DATE: 20190515
